FAERS Safety Report 9077008 (Version 1)
Quarter: 2013Q1

REPORT INFORMATION
  Report Type: Spontaneous
  Country: US (occurrence: US)
  Receive Date: 20130130
  Receipt Date: 20130130
  Transmission Date: 20140127
  Serious: Yes (Other)
  Sender: FDA-Public Use
  Company Number: US-JNJFOC-20130111344

PATIENT
  Sex: Female
  Weight: 99.79 kg

DRUGS (2)
  1. DURAGESIC [Suspect]
     Indication: PAIN
     Dosage: NDC 50458-094-05
     Route: 062
  2. AMITRIPTYLINE [Concomitant]
     Indication: SLEEP DISORDER
     Dosage: REPORTED START DATE AS NOV-2013
     Route: 048

REACTIONS (1)
  - Chronic leukaemia [Not Recovered/Not Resolved]
